FAERS Safety Report 8409976 (Version 2)
Quarter: 2013Q2

REPORT INFORMATION
  Report Type: Spontaneous
  Country: US (occurrence: None)
  Receive Date: 20111227
  Receipt Date: 20120426
  Transmission Date: 20140414
  Serious: No
  Sender: FDA-Public Use
  Company Number: PHEH2011US009264

PATIENT
  Age: 47 Year
  Sex: Female
  Weight: 79.4 kg

DRUGS (1)
  1. GILENYA [Suspect]
     Indication: MULTIPLE SCLEROSIS
     Dosage: 0.5 MG, DAILY, ORAL
     Route: 048
     Dates: start: 20111025

REACTIONS (4)
  - PYREXIA [None]
  - Macular oedema [None]
  - Metamorphopsia [None]
  - Nasopharyngitis [None]
